FAERS Safety Report 23810967 (Version 1)
Quarter: 2024Q2

REPORT INFORMATION
  Report Type: Spontaneous
  Country: HR (occurrence: HR)
  Receive Date: 20240502
  Receipt Date: 20240502
  Transmission Date: 20240715
  Serious: Yes (Other)
  Sender: FDA-Public Use
  Company Number: HR-WOODWARD-2024-HR-000007

PATIENT
  Age: 89 Year
  Sex: Female

DRUGS (1)
  1. RABEPRAZOLE SODIUM [Suspect]
     Active Substance: RABEPRAZOLE SODIUM
     Indication: Gastric pH decreased
     Dosage: 20.0 MILLIGRAM(S) (10 MILLIGRAM(S), 1 IN 0.5 DAY)
     Route: 048
     Dates: start: 20240301, end: 20240315

REACTIONS (3)
  - Anuria [Unknown]
  - Dizziness [Recovered/Resolved]
  - Asthenia [Recovered/Resolved]

NARRATIVE: CASE EVENT DATE: 20240301
